FAERS Safety Report 21173146 (Version 1)
Quarter: 2022Q3

REPORT INFORMATION
  Report Type: Spontaneous
  Country: US (occurrence: None)
  Receive Date: 20220804
  Receipt Date: 20220804
  Transmission Date: 20221027
  Serious: Yes (Disabling)
  Sender: FDA-Public Use
  Company Number: None

PATIENT
  Age: 32 Year
  Sex: Female
  Weight: 69.3 kg

DRUGS (5)
  1. LEVOFLOXACIN [Suspect]
     Active Substance: LEVOFLOXACIN
     Indication: Urinary tract infection
     Dosage: OTHER QUANTITY : 7 TABLET(S);?FREQUENCY : DAILY;?
     Route: 048
     Dates: start: 20220716, end: 20220718
  2. NITROFURANTOIN [Concomitant]
     Active Substance: NITROFURANTOIN
  3. Vitafol One multivitamin [Concomitant]
  4. VITAMIN B12 [Concomitant]
     Active Substance: CYANOCOBALAMIN
  5. D MANNOSE [Concomitant]

REACTIONS (7)
  - Joint range of motion decreased [None]
  - Hypokinesia [None]
  - Musculoskeletal stiffness [None]
  - Arthralgia [None]
  - Pain in extremity [None]
  - Memory impairment [None]
  - Amnesia [None]

NARRATIVE: CASE EVENT DATE: 20220716
